FAERS Safety Report 8419012-6 (Version None)
Quarter: 2012Q2

REPORT INFORMATION
  Report Type: 
  Country: None (occurrence: None)
  Receive Date: 20120530
  Receipt Date: 20120516
  Transmission Date: 20120825
  Serious: Yes (Other)
  Sender: FDA-Public Use
  Company Number: AUR-APL-2012-02294

PATIENT
  Age: 3 Year
  Sex: Male
  Weight: 16 kg

DRUGS (3)
  1. RANITIDINE HYDROCHLORIDE [Concomitant]
  2. PLASIL (METOCLOPRAMIDE) [Concomitant]
  3. CEFTRIAXONE [Suspect]
     Indication: PRODUCT USED FOR UNKNOWN INDICATION
     Dosage: 1600 MG (800 MG, 1 IN 12 HR), INTRAVENOUS
     Route: 042
     Dates: start: 20120508, end: 20120510

REACTIONS (2)
  - ANGIOEDEMA [None]
  - EYELID DISORDER [None]
